FAERS Safety Report 10753783 (Version 1)
Quarter: 2015Q1

REPORT INFORMATION
  Report Type: Spontaneous
  Country: US (occurrence: US)
  Receive Date: 20150201
  Receipt Date: 20150201
  Transmission Date: 20150721
  Serious: No
  Sender: FDA-Public Use
  Company Number: US-009507513-1501USA006313

PATIENT
  Age: 76 Year
  Sex: Female
  Weight: 130.98 kg

DRUGS (7)
  1. TYLENOL [Concomitant]
     Active Substance: ACETAMINOPHEN
  2. CHOLECALCIFEROL [Concomitant]
     Active Substance: CHOLECALCIFEROL
  3. FLONASE [Concomitant]
     Active Substance: FLUTICASONE PROPIONATE
  4. DULERA [Suspect]
     Active Substance: FORMOTEROL FUMARATE DIHYDRATE\MOMETASONE FUROATE
     Indication: DYSPNOEA
     Dosage: 2 PUFFS TWICE DAILY
     Route: 055
     Dates: start: 20131119, end: 20140201
  5. DULERA [Suspect]
     Active Substance: FORMOTEROL FUMARATE DIHYDRATE\MOMETASONE FUROATE
     Indication: CONDITION AGGRAVATED
  6. LIPITOR [Concomitant]
     Active Substance: ATORVASTATIN CALCIUM
  7. TAMBOCOR [Concomitant]
     Active Substance: FLECAINIDE ACETATE

REACTIONS (1)
  - Tremor [Not Recovered/Not Resolved]

NARRATIVE: CASE EVENT DATE: 20140131
